FAERS Safety Report 7159750 (Version 5)
Quarter: 2013Q1

REPORT INFORMATION
  Report Type: Spontaneous
  Country: US (occurrence: US)
  Receive Date: 20091027
  Receipt Date: 20130125
  Transmission Date: 20140127
  Serious: Yes (Death, Hospitalization, Other)
  Sender: FDA-Public Use
  Company Number: US-ELI_LILLY_AND_COMPANY-US200910005607

PATIENT
  Age: 64 Year
  Sex: Female

DRUGS (11)
  1. BYETTA [Suspect]
     Dosage: UNK, UNKNOWN
     Route: 065
     Dates: start: 200704, end: 200803
  2. TYLENOL /00020001/ [Concomitant]
     Dosage: UNK, UNKNOWN
  3. TRAZODONE [Concomitant]
  4. ALLEGRA [Concomitant]
  5. NALTREXONE [Concomitant]
  6. AMLODIPINE [Concomitant]
  7. FLAGYL [Concomitant]
  8. BACTRIM [Concomitant]
  9. ACTOS [Concomitant]
  10. METFORMIN [Concomitant]
  11. BUSPAR [Concomitant]

REACTIONS (3)
  - Pancreatic carcinoma [Fatal]
  - Metastases to liver [Unknown]
  - Pancreatitis acute [Unknown]
